FAERS Safety Report 22392329 (Version 2)
Quarter: 2023Q2

REPORT INFORMATION
  Report Type: Spontaneous
  Country: PL (occurrence: PL)
  Receive Date: 20230601
  Receipt Date: 20230616
  Transmission Date: 20230721
  Serious: Yes (Life-Threatening, Other)
  Sender: FDA-Public Use
  Company Number: PL-002147023-NVSC2023PL122937

PATIENT
  Age: 54 Year
  Sex: Female

DRUGS (1)
  1. ALPELISIB [Suspect]
     Active Substance: ALPELISIB
     Indication: PIK3CA-activated mutation
     Dosage: 300 MG, QD
     Route: 048
     Dates: end: 20230519

REACTIONS (6)
  - Angioedema [Recovered/Resolved]
  - Syncope [Recovered/Resolved]
  - Rash [Recovered/Resolved]
  - Generalised oedema [Recovered/Resolved]
  - Blood pressure increased [Recovered/Resolved]
  - Vomiting [Unknown]

NARRATIVE: CASE EVENT DATE: 20230519
